FAERS Safety Report 7266727 (Version 2)
Quarter: 2013Q4

REPORT INFORMATION
  Report Type: Spontaneous
  Country: US (occurrence: None)
  Receive Date: 20100119
  Receipt Date: 20131230
  Transmission Date: 20140711
  Serious: Yes (Other)
  Sender: FDA-Public Use
  Company Number: 2010S1000042

PATIENT
  Sex: Male
  Weight: 109.77 kg

DRUGS (11)
  1. FLEET PHOSPHO-SODA [Suspect]
     Indication: PRODUCT USED FOR UNKNOWN INDICATION
     Dosage: ; PO
     Route: 048
  2. AVANDIA (ROSIGLITAZONE MALEATE) [Concomitant]
  3. GLUCOPHAGE (METFORMIN HYDROCHLORIDE) [Concomitant]
  4. GLUCOTROL XL (GLIPIZIDE) [Concomitant]
  5. PRILOSEC (OMEPRAZOLE) [Concomitant]
  6. TRICOR (FENOFIBRATE) [Concomitant]
  7. ACCUPRIL (QUINAPRIL HYDROCHLORIDE) [Concomitant]
  8. ZOLOFT (SERTRALINE HYDROCHLORIDE) [Concomitant]
  9. NORVASC (AMLODIPINE BESILATE) [Concomitant]
  10. HYDROCHLOROTHIAZIDE (HYDROCHLOROTHIAZIDE) [Concomitant]
  11. BAYCOL (CERIVASTATIN SODIUM) [Concomitant]

REACTIONS (1)
  - Renal disorder [None]
